FAERS Safety Report 7729906-2 (Version None)
Quarter: 2011Q3

REPORT INFORMATION
  Report Type: 
  Country: None (occurrence: None)
  Receive Date: 20110906
  Receipt Date: 20110830
  Transmission Date: 20111222
  Serious: Yes (Life-Threatening, Hospitalization)
  Sender: FDA-Public Use
  Company Number: IN-ROCHE-800342

PATIENT
  Age: 55 Year
  Sex: Female
  Weight: 56 kg

DRUGS (4)
  1. TRASTUZUMAB [Suspect]
     Indication: BREAST CANCER
     Dosage: DATE OF LAST PRIOR TO EVEMT: 29 JUL 2010, PERMANENTLY WITHDRAWN
     Route: 042
     Dates: start: 20100521, end: 20100805
  2. VITAMIN B COMPLEX CAP [Concomitant]
     Dates: start: 20100624
  3. PACLITAXEL [Suspect]
     Indication: BREAST CANCER
     Dosage: DATE OF LAST PRIOR TO EVEMT: 29 JUL 2010, PERMANENTLY WITHDRAWN
     Route: 042
     Dates: start: 20100521, end: 20100805
  4. RIBOFLAVIN/THIAMINE [Concomitant]
     Dates: start: 20100624

REACTIONS (1)
  - PULMONARY TUBERCULOSIS [None]
